FAERS Safety Report 23172985 (Version 1)
Quarter: 2023Q4

REPORT INFORMATION
  Report Type: Other
  Country: None (occurrence: US)
  Receive Date: 20231110
  Receipt Date: 20231110
  Transmission Date: 20240109
  Serious: Yes (Life-Threatening, Hospitalization, Other)
  Sender: FDA-Public Use
  Company Number: US-ASPIRO PHARMA LTD-2148102

PATIENT
  Age: 28 Year
  Sex: Male

DRUGS (1)
  1. OLANZAPINE [Suspect]
     Active Substance: OLANZAPINE
     Indication: Bipolar disorder
     Route: 065

REACTIONS (4)
  - Metabolic syndrome [Recovered/Resolved]
  - Diabetic ketoacidosis [Recovered/Resolved]
  - Pancreatitis acute [Recovered/Resolved]
  - Hypertriglyceridaemia [Recovered/Resolved]
